FAERS Safety Report 19812116 (Version 1)
Quarter: 2021Q3

REPORT INFORMATION
  Report Type: Spontaneous
  Country: US (occurrence: US)
  Receive Date: 20210910
  Receipt Date: 20210910
  Transmission Date: 20211014
  Serious: No
  Sender: FDA-Public Use
  Company Number: US-CADILA HEALTHCARE LIMITED-US-ZYDUS-055013

PATIENT
  Sex: Male

DRUGS (1)
  1. MELOXICAM 7.5 MILLIGRAM TABLET [Suspect]
     Active Substance: MELOXICAM
     Indication: ARTHRALGIA
     Dosage: 7.5 MILLIGRAM, QD
     Route: 048
     Dates: start: 20200811

REACTIONS (2)
  - Product use in unapproved indication [Not Recovered/Not Resolved]
  - Rash pruritic [Not Recovered/Not Resolved]

NARRATIVE: CASE EVENT DATE: 20200813
